FAERS Safety Report 9786523 (Version 2)
Quarter: 2014Q2

REPORT INFORMATION
  Report Type: Spontaneous
  Country: US (occurrence: US)
  Receive Date: 20131227
  Receipt Date: 20140528
  Transmission Date: 20141212
  Serious: Yes (Hospitalization)
  Sender: FDA-Public Use
  Company Number: US-B.I. PHARMACEUTICALS,INC./RIDGEFIELD-2013-BI-43695BP

PATIENT
  Age: 66 Year
  Sex: Male
  Weight: 99.79 kg

DRUGS (14)
  1. PRADAXA [Suspect]
     Indication: ATRIAL FIBRILLATION
     Dosage: 300 MG
     Route: 048
     Dates: start: 20110824, end: 20120113
  2. ASPIRIN [Concomitant]
     Route: 065
  3. LIPITOR [Concomitant]
     Route: 065
     Dates: start: 2009
  4. LOTREL [Concomitant]
     Route: 065
     Dates: start: 2007, end: 2012
  5. METFORMIN [Concomitant]
     Route: 065
     Dates: start: 2006
  6. PLAVIX [Concomitant]
     Route: 065
     Dates: start: 2009, end: 2012
  7. REGLAN [Concomitant]
     Dosage: 40 MG
     Route: 048
  8. NIASPAN ER [Concomitant]
     Dosage: 500 MG
     Route: 048
  9. SYNTHROID [Concomitant]
     Dosage: 125 MCG
     Route: 048
  10. AMIODARONE [Concomitant]
     Dosage: 200 MG
     Route: 048
  11. GLIMEPIRIDE [Concomitant]
     Dosage: 8 MG
     Route: 048
  12. COREG [Concomitant]
     Dosage: 50 MG
     Route: 048
  13. DIGOXIN [Concomitant]
     Dosage: 0.125 MG
     Route: 048
  14. XALATAN [Concomitant]
     Route: 031

REACTIONS (1)
  - Acute myocardial infarction [Unknown]
